FAERS Safety Report 12772756 (Version 1)
Quarter: 2016Q3

REPORT INFORMATION
  Report Type: Spontaneous
  Country: US (occurrence: US)
  Receive Date: 20160922
  Receipt Date: 20160922
  Transmission Date: 20161109
  Serious: Yes (Other)
  Sender: FDA-Public Use
  Company Number: US-LUNDBECK-DKLU2019675

PATIENT
  Sex: Male

DRUGS (5)
  1. SABRIL [Suspect]
     Active Substance: VIGABATRIN
     Route: 048
     Dates: start: 2016
  2. KEPPRA [Concomitant]
     Active Substance: LEVETIRACETAM
     Indication: PRODUCT USED FOR UNKNOWN INDICATION
     Route: 065
  3. PHENOBARBITAL. [Concomitant]
     Active Substance: PHENOBARBITAL
     Indication: PRODUCT USED FOR UNKNOWN INDICATION
     Route: 065
  4. SABRIL [Suspect]
     Active Substance: VIGABATRIN
     Indication: INFANTILE SPASMS
     Route: 048
     Dates: start: 2016
  5. SABRIL [Suspect]
     Active Substance: VIGABATRIN
     Route: 048
     Dates: start: 2016

REACTIONS (5)
  - Eye movement disorder [Unknown]
  - Neurodevelopmental disorder [Not Recovered/Not Resolved]
  - Cortical visual impairment [Not Recovered/Not Resolved]
  - Nystagmus [Not Recovered/Not Resolved]
  - Muscle tightness [Not Recovered/Not Resolved]
